FAERS Safety Report 16748105 (Version 3)
Quarter: 2019Q4

REPORT INFORMATION
  Report Type: Report from Study
  Country: US (occurrence: US)
  Receive Date: 20190827
  Receipt Date: 20191127
  Transmission Date: 20200122
  Serious: Yes (Hospitalization, Other)
  Sender: FDA-Public Use
  Company Number: US-ACTELION-A-NJ2019-193375

PATIENT
  Age: 82 Year
  Sex: Female
  Weight: 54.42 kg

DRUGS (5)
  1. OPSUMIT [Suspect]
     Active Substance: MACITENTAN
     Indication: PULMONARY ARTERIAL HYPERTENSION
     Dosage: 10 MG, QD
     Route: 048
     Dates: start: 20190611
  2. OXYGEN. [Concomitant]
     Active Substance: OXYGEN
     Dosage: 3 L/MIN, CONTINUOUS
     Dates: start: 20191105
  3. DILTIAZEM. [Concomitant]
     Active Substance: DILTIAZEM
  4. ELIQUIS [Concomitant]
     Active Substance: APIXABAN
  5. ADEMPAS [Concomitant]
     Active Substance: RIOCIGUAT

REACTIONS (10)
  - Aspiration pleural cavity [Unknown]
  - Oedema [Unknown]
  - Anaemia [Unknown]
  - Cough [Unknown]
  - Oedema peripheral [Unknown]
  - Hypotension [Unknown]
  - Sepsis [Unknown]
  - Transfusion [Unknown]
  - Kidney infection [Unknown]
  - Dyspnoea [Recovering/Resolving]

NARRATIVE: CASE EVENT DATE: 20190715
